FAERS Safety Report 20033105 (Version 2)
Quarter: 2021Q4

REPORT INFORMATION
  Report Type: Spontaneous
  Country: US (occurrence: US)
  Receive Date: 20211104
  Receipt Date: 20211114
  Transmission Date: 20220303
  Serious: Yes (Death, Life-Threatening, Hospitalization, Other)
  Sender: FDA-Public Use
  Company Number: US-AMGEN-USASP2021172065

PATIENT

DRUGS (14)
  1. FILGRASTIM [Suspect]
     Active Substance: FILGRASTIM
     Indication: Aplastic anaemia
     Dosage: 5 MICROGRAM/KILOGRAM, QD FOR 3 MONTHS
     Route: 058
  2. FILGRASTIM [Suspect]
     Active Substance: FILGRASTIM
     Indication: Myelodysplastic syndrome
  3. FILGRASTIM [Suspect]
     Active Substance: FILGRASTIM
     Indication: Prophylaxis
  4. PEGFILGRASTIM [Suspect]
     Active Substance: PEGFILGRASTIM
     Indication: Prophylaxis
     Dosage: UNK
     Route: 065
  5. METHYLPREDNISOLONE [Concomitant]
     Active Substance: METHYLPREDNISOLONE
     Dosage: 1 MILLIGRAM/KILOGRAM, QD
  6. METHYLPREDNISOLONE [Concomitant]
     Active Substance: METHYLPREDNISOLONE
     Dosage: ON DAYS 1-5 PRIOR TO EATG INFUSION
  7. PREDNISONE [Concomitant]
     Active Substance: PREDNISONE
     Dosage: ON DAY 6 AND TAPERED OFF OVER 28 DAYS
     Route: 048
  8. ACETAMINOPHEN [Concomitant]
     Active Substance: ACETAMINOPHEN
     Dosage: 650 MILLIGRAM
  9. DIPHENHYDRAMINE [Concomitant]
     Active Substance: DIPHENHYDRAMINE
     Dosage: 25 MILLIGRAM
  10. MEPERIDINE HYDROCHLORIDE [Concomitant]
     Active Substance: MEPERIDINE HYDROCHLORIDE
     Dosage: 25 MILLIGRAM
  11. LEVOFLOXACIN [Concomitant]
     Active Substance: LEVOFLOXACIN
     Dosage: UNK
  12. FLUCONAZOLE [Concomitant]
     Active Substance: FLUCONAZOLE
     Dosage: UNK
  13. VALACYCLOVIR HYDROCHLORIDE [Concomitant]
     Active Substance: VALACYCLOVIR HYDROCHLORIDE
     Dosage: UNK
  14. CYCLOSPORINE [Concomitant]
     Active Substance: CYCLOSPORINE
     Dosage: 5 MILLIGRAM/KILOGRAM ON DAY 06
     Route: 048

REACTIONS (60)
  - Adverse drug reaction [Unknown]
  - Gastrointestinal haemorrhage [Fatal]
  - Death [Fatal]
  - Bacterial sepsis [Fatal]
  - Pneumonia [Unknown]
  - Febrile neutropenia [Unknown]
  - Renal failure [Unknown]
  - Syncope [Unknown]
  - Urinary tract infection staphylococcal [Unknown]
  - Neutropenia [Unknown]
  - Abdominal pain [Unknown]
  - Blood calcium abnormal [Unknown]
  - Hyperglycaemia [Unknown]
  - Myelosuppression [Unknown]
  - Hyperbilirubinaemia [Unknown]
  - Infection [Unknown]
  - Transaminases increased [Unknown]
  - Chills [Unknown]
  - Hyperkalaemia [Unknown]
  - Hypokalaemia [Unknown]
  - Leukopenia [Unknown]
  - Delirium [Unknown]
  - Aplastic anaemia [Unknown]
  - Thrombocytopenia [Unknown]
  - Hypertension [Unknown]
  - Leukocytosis [Unknown]
  - Anaemia [Unknown]
  - Dizziness [Unknown]
  - Pyrexia [Unknown]
  - Dyspnoea [Unknown]
  - Therapy partial responder [Unknown]
  - Therapy non-responder [Unknown]
  - Nasopharyngitis [Unknown]
  - Dysphagia [Unknown]
  - Hypomagnesaemia [Unknown]
  - Hyponatraemia [Unknown]
  - Confusional state [Unknown]
  - Acute sinusitis [Unknown]
  - Alanine aminotransferase increased [Unknown]
  - Liver function test increased [Unknown]
  - Blood magnesium decreased [Unknown]
  - Hypoalbuminaemia [Unknown]
  - Oedema [Unknown]
  - Haematuria [Unknown]
  - Blood uric acid increased [Unknown]
  - Blood creatinine increased [Unknown]
  - Myalgia [Unknown]
  - Muscle spasms [Unknown]
  - Cough [Unknown]
  - Bone pain [Unknown]
  - Headache [Unknown]
  - Chest pain [Unknown]
  - Fatigue [Unknown]
  - Nausea [Unknown]
  - Vomiting [Unknown]
  - Diarrhoea [Unknown]
  - Constipation [Unknown]
  - Insomnia [Unknown]
  - Rash [Unknown]
  - Musculoskeletal pain [Unknown]
